FAERS Safety Report 7001860-0 (Version None)
Quarter: 2010Q3

REPORT INFORMATION
  Report Type: 
  Country: None (occurrence: None)
  Receive Date: 20100920
  Receipt Date: 20100907
  Transmission Date: 20110219
  Serious: Yes (Other)
  Sender: FDA-Public Use
  Company Number: US-CELGENEUS-163-21880-10091013

PATIENT

DRUGS (4)
  1. REVLIMID [Suspect]
     Route: 048
  2. FLUIDS [Concomitant]
     Indication: PRODUCT USED FOR UNKNOWN INDICATION
     Route: 051
  3. STEROIDS [Concomitant]
     Indication: PRODUCT USED FOR UNKNOWN INDICATION
     Route: 065
  4. NEUPOGEN [Concomitant]
     Indication: NEUTROPENIA
     Route: 065

REACTIONS (2)
  - HYPERCALCAEMIA [None]
  - NEUTROPENIA [None]
